FAERS Safety Report 21081510 (Version 2)
Quarter: 2022Q3

REPORT INFORMATION
  Report Type: Spontaneous
  Country: US (occurrence: US)
  Receive Date: 20220714
  Receipt Date: 20220725
  Transmission Date: 20221026
  Serious: No
  Sender: FDA-Public Use
  Company Number: US-AIMMUNE THERAPEUTICS, INC.-2022AIMT00541

PATIENT

DRUGS (2)
  1. PALFORZIA [Suspect]
     Active Substance: PEANUT
     Indication: Food allergy
     Dosage: 200 MG, 1X/DAY
     Route: 048
     Dates: start: 20220622, end: 20220712
  2. PALFORZIA [Suspect]
     Active Substance: PEANUT
     Dosage: 240 MG, 1X/DAY, UP-DOSED
     Route: 048
     Dates: start: 20220713

REACTIONS (1)
  - COVID-19 [Recovered/Resolved]

NARRATIVE: CASE EVENT DATE: 20220701
